FAERS Safety Report 9944209 (Version 1)
Quarter: 2014Q1

REPORT INFORMATION
  Report Type: Report from Study
  Country: US (occurrence: US)
  Receive Date: 20140303
  Receipt Date: 20140303
  Transmission Date: 20141002
  Serious: No
  Sender: FDA-Public Use
  Company Number: US-ABBVIE-13P-163-1050099-00

PATIENT
  Age: 44 Year
  Sex: Male

DRUGS (8)
  1. HUMIRA [Suspect]
     Indication: ANKYLOSING SPONDYLITIS
     Dates: start: 20121227, end: 20130110
  2. HUMIRA [Suspect]
     Dates: start: 20130124, end: 20130124
  3. HUMIRA [Suspect]
     Dates: start: 20130207, end: 20130207
  4. HUMIRA [Suspect]
     Dates: start: 20130221
  5. ALLOPURINOL [Concomitant]
     Indication: GOUT
     Dosage: 4 TABLETS DAILY
  6. PENTASA [Concomitant]
     Indication: CROHN^S DISEASE
  7. BUDESONIDE [Concomitant]
     Indication: GASTROINTESTINAL DISORDER
     Dosage: 2 A DAY
  8. MULTIVITAMIN WITH EXTRA VITAMIN D [Concomitant]
     Indication: PRODUCT USED FOR UNKNOWN INDICATION
     Dosage: 1 EVERY DAY

REACTIONS (5)
  - Fatigue [Not Recovered/Not Resolved]
  - Nausea [Not Recovered/Not Resolved]
  - Sinusitis [Not Recovered/Not Resolved]
  - Feeling hot [Not Recovered/Not Resolved]
  - Feeling cold [Not Recovered/Not Resolved]
